FAERS Safety Report 22150365 (Version 1)
Quarter: 2023Q1

REPORT INFORMATION
  Report Type: Report from Study
  Country: US (occurrence: US)
  Receive Date: 20230329
  Receipt Date: 20230329
  Transmission Date: 20230417
  Serious: Yes (Other)
  Sender: FDA-Public Use
  Company Number: US-002147023-NVSC2023US067567

PATIENT
  Sex: Female

DRUGS (2)
  1. KESIMPTA [Suspect]
     Active Substance: OFATUMUMAB
     Indication: Multiple sclerosis
     Dosage: 20 MG, EVERY 28 DAYS
     Route: 058
     Dates: start: 20230125
  2. KESIMPTA [Suspect]
     Active Substance: OFATUMUMAB
     Dosage: 20 MG, EVERY 28 DAYS
     Route: 058
     Dates: start: 20230222

REACTIONS (7)
  - Multiple sclerosis [Unknown]
  - Grip strength decreased [Not Recovered/Not Resolved]
  - Gait disturbance [Not Recovered/Not Resolved]
  - Movement disorder [Not Recovered/Not Resolved]
  - Hyperphagia [Not Recovered/Not Resolved]
  - Memory impairment [Unknown]
  - Incorrect dose administered [Unknown]
